FAERS Safety Report 12381420 (Version 2)
Quarter: 2016Q2

REPORT INFORMATION
  Report Type: Spontaneous
  Country: FR (occurrence: FR)
  Receive Date: 20160518
  Receipt Date: 20160531
  Transmission Date: 20160815
  Serious: Yes (Other)
  Sender: FDA-Public Use
  Company Number: FR-JNJFOC-20160512933

PATIENT
  Sex: Male

DRUGS (4)
  1. CYCLOSERINE. [Concomitant]
     Active Substance: CYCLOSERINE
     Route: 065
  2. PARA-AMINOSALICYLIC ACID [Concomitant]
     Active Substance: AMINOSALICYLIC ACID
     Route: 065
  3. SIRTURO [Suspect]
     Active Substance: BEDAQUILINE FUMARATE
     Indication: TUBERCULOSIS
     Route: 048
     Dates: end: 20160513
  4. AMIKLIN [Concomitant]
     Active Substance: AMIKACIN SULFATE
     Route: 065

REACTIONS (2)
  - Bone infarction [Unknown]
  - Arthralgia [Not Recovered/Not Resolved]

NARRATIVE: CASE EVENT DATE: 2016
